FAERS Safety Report 9249060 (Version 1)
Quarter: 2013Q1

REPORT INFORMATION
  Report Type: Spontaneous
  Country: US (occurrence: None)
  Receive Date: 20130305
  Receipt Date: 20130305
  Transmission Date: 20140127
  Serious: Yes (Disabling)
  Sender: FDA-Public Use
  Company Number: 163-21880-12061267

PATIENT
  Age: 64 Year
  Sex: Female
  Weight: 88.91 kg

DRUGS (5)
  1. REVLIMID [Suspect]
     Indication: PLASMA CELL MYELOMA
     Dosage: Q HS FOR 21 DAYS
     Route: 048
     Dates: start: 20120501
  2. ATIVAN (LORAZEPAM) [Concomitant]
  3. MAALOX (MAALOX) [Concomitant]
  4. PHENERGAN (PROMETHAZINE HYDROCHLORIDE) [Concomitant]
  5. ZOFRAN (ONDANSETRON HYDROCHLORIDE) [Concomitant]

REACTIONS (2)
  - Asthenia [None]
  - Dizziness [None]
